FAERS Safety Report 5663443-4 (Version None)
Quarter: 2008Q1

REPORT INFORMATION
  Report Type: 
  Country: None (occurrence: None)
  Receive Date: 20080310
  Receipt Date: 20080222
  Transmission Date: 20080703
  Serious: Yes (Hospitalization)
  Sender: FDA-Public Use
  Company Number: 2008JP000691

PATIENT
  Age: 64 Year
  Sex: Female
  Weight: 46.3 kg

DRUGS (8)
  1. TACROLIMUS [Suspect]
     Indication: RHEUMATOID ARTHRITIS
     Dosage: 3 MG, D, ORAL
     Route: 048
     Dates: start: 20071017, end: 20080204
  2. AZULFIDINE EN-TABS [Concomitant]
  3. ETODOLAC [Concomitant]
  4. SOLON (SOFALCONE) CAPSULE [Concomitant]
  5. TAKEPRON (LANSOPRAZOLE) ORODISPERISIBLE CR TABLET [Concomitant]
  6. DICLOFENAC SODIUM TAPE [Concomitant]
  7. GASLON (IRSOGLADINE MALEATE) GRANULE [Concomitant]
  8. INTEBAN (INDOMETACIN) CREAM [Concomitant]

REACTIONS (1)
  - THROMBOTIC STROKE [None]
